FAERS Safety Report 4342948-2 (Version None)
Quarter: 2004Q2

REPORT INFORMATION
  Report Type: 
  Country: None (occurrence: None)
  Receive Date: 20040416
  Receipt Date: 20040406
  Transmission Date: 20050107
  Serious: Yes (Death, Hospitalization)
  Sender: FDA-Public Use
  Company Number: 2004023152

PATIENT
  Sex: Female

DRUGS (1)
  1. FELDENE [Suspect]
     Indication: BACK PAIN

REACTIONS (1)
  - GASTROINTESTINAL HAEMORRHAGE [None]
